FAERS Safety Report 7334450 (Version 6)
Quarter: 2014Q1

REPORT INFORMATION
  Report Type: Spontaneous
  Country: US (occurrence: US)
  Receive Date: 20100329
  Receipt Date: 20140324
  Transmission Date: 20141002
  Serious: Yes (Death, Hospitalization)
  Sender: FDA-Public Use
  Company Number: US-BIOGENIDEC-2010BI009539

PATIENT
  Age: 67 Year
  Sex: Female
  Weight: 113 kg

DRUGS (13)
  1. TYSABRI [Suspect]
     Indication: MULTIPLE SCLEROSIS
     Route: 042
     Dates: start: 20070323, end: 20100127
  2. GABAPENTIN [Concomitant]
  3. MIRAPEX [Concomitant]
  4. CYMBALTA [Concomitant]
  5. PRIMIDONE [Concomitant]
  6. ALPRAZOLAM [Concomitant]
  7. ADDERALL [Concomitant]
  8. VESICARE [Concomitant]
  9. ASPIRIN [Concomitant]
  10. LORATADINE [Concomitant]
  11. METFORMIN [Concomitant]
  12. BENICAR [Concomitant]
  13. LOVASTATIN [Concomitant]

REACTIONS (4)
  - Lung cancer metastatic [Fatal]
  - Fall [Recovered/Resolved]
  - Pain in extremity [Not Recovered/Not Resolved]
  - Foot fracture [Unknown]
